FAERS Safety Report 5682712-5 (Version None)
Quarter: 2008Q1

REPORT INFORMATION
  Report Type: 
  Country: None (occurrence: None)
  Receive Date: 20080326
  Receipt Date: 20080326
  Transmission Date: 20080703
  Serious: Yes (Other)
  Sender: FDA-Public Use
  Company Number: None

PATIENT
  Sex: Female
  Weight: 69.8539 kg

DRUGS (1)
  1. LEVAQUIN [Suspect]
     Indication: DIVERTICULITIS
     Dosage: 1 EVERY DAY PO
     Route: 048
     Dates: start: 20080312, end: 20080314

REACTIONS (4)
  - CHILLS [None]
  - INSOMNIA [None]
  - PRURITUS [None]
  - PYREXIA [None]
